FAERS Safety Report 5063549-7 (Version None)
Quarter: 2006Q3

REPORT INFORMATION
  Report Type: 
  Country: None (occurrence: None)
  Receive Date: 20060727
  Receipt Date: 20060721
  Transmission Date: 20061208
  Serious: Yes (Other)
  Sender: FDA-Public Use
  Company Number: PHNU2006DE02589

PATIENT
  Age: 45 Year
  Sex: Male

DRUGS (4)
  1. TRILEPTAL [Suspect]
     Dosage: 1.5 DF, BID
     Dates: start: 20050101
  2. LIORESAL [Suspect]
  3. BETAFERON [Concomitant]
  4. SERTRALINE [Concomitant]

REACTIONS (2)
  - INCORRECT DOSE ADMINISTERED [None]
  - SUICIDAL IDEATION [None]
